FAERS Safety Report 4505312-9 (Version None)
Quarter: 2004Q4

REPORT INFORMATION
  Report Type: 
  Country: None (occurrence: None)
  Receive Date: 20041015
  Receipt Date: 20040701
  Transmission Date: 20050328
  Serious: Yes (Other)
  Sender: FDA-Public Use
  Company Number: 2004033000

PATIENT
  Sex: Male
  Weight: 88.4514 kg

DRUGS (1)
  1. NEURONTIN [Suspect]
     Indication: NEUROPATHIC PAIN
     Dosage: (300 MG, EVERYDAY), ORAL
     Route: 048
     Dates: end: 20020101

REACTIONS (9)
  - DIPLOPIA [None]
  - DIZZINESS [None]
  - DYSARTHRIA [None]
  - GAIT DISTURBANCE [None]
  - NAUSEA [None]
  - PRURITUS [None]
  - UNEVALUABLE EVENT [None]
  - VISION BLURRED [None]
  - VISUAL DISTURBANCE [None]
